FAERS Safety Report 6241721-8 (Version None)
Quarter: 2009Q2

REPORT INFORMATION
  Report Type: 
  Country: None (occurrence: None)
  Receive Date: 20090623
  Receipt Date: 20070420
  Transmission Date: 20091009
  Serious: Yes (Other)
  Sender: FDA-Public Use
  Company Number: US-ROCHE-494161

PATIENT
  Age: 65 Year
  Sex: Male

DRUGS (4)
  1. MYCOPHENOLATE MOFETIL [Suspect]
     Route: 065
  2. MYCOPHENOLATE MOFETIL [Suspect]
     Dosage: DOSE REDUCED.
     Route: 065
  3. TACROLIMUS [Concomitant]
     Dosage: 12-15.
     Route: 065
  4. PREDNISONE [Concomitant]
     Route: 065

REACTIONS (5)
  - APLASIA PURE RED CELL [None]
  - DIVERTICULITIS [None]
  - DUODENITIS [None]
  - ERYTHEMA INFECTIOSUM [None]
  - HIATUS HERNIA [None]
